FAERS Safety Report 5534949-3 (Version None)
Quarter: 2007Q4

REPORT INFORMATION
  Report Type: 
  Country: None (occurrence: None)
  Receive Date: 20071205
  Receipt Date: 20071128
  Transmission Date: 20080405
  Serious: No
  Sender: FDA-Public Use
  Company Number: US-BOEHRINGER INGELHEIM PHARMACEUTICALS, INC.-2007-BP-25409BP

PATIENT
  Sex: Female

DRUGS (4)
  1. SPIRIVA [Suspect]
     Indication: EMPHYSEMA
     Route: 055
     Dates: start: 20060101, end: 20060101
  2. SEREVENT [Suspect]
  3. ALBUTEROL [Concomitant]
     Indication: EMPHYSEMA
  4. THEOPHYLLINE [Concomitant]
     Indication: EMPHYSEMA

REACTIONS (3)
  - DRY MOUTH [None]
  - DYSURIA [None]
  - EYE DISORDER [None]
